FAERS Safety Report 5851405-3 (Version None)
Quarter: 2008Q3

REPORT INFORMATION
  Report Type: 
  Country: None (occurrence: None)
  Receive Date: 20080731
  Receipt Date: 20080629
  Transmission Date: 20090109
  Serious: No
  Sender: FDA-Public Use
  Company Number: US200806006557

PATIENT
  Age: 44 Year
  Sex: Female

DRUGS (5)
  1. BYETTA [Suspect]
     Indication: TYPE 2 DIABETES MELLITUS
     Dosage: 5 UG, 2/D, SUBCUTANEOUS
     Route: 058
     Dates: start: 20080602, end: 20080629
  2. EXENATIDE PEN, DISPOSABLE DEVICE (EXENATIDE PEN) PEN,DISPOSABLE [Concomitant]
  3. FORTAMET (METFORMIN HYDROCHLORIDE) [Concomitant]
  4. DRUG USED IN DIABETES [Concomitant]
  5. GLIPIZIDE XL (GLIPIZIDE) [Concomitant]

REACTIONS (1)
  - RASH PRURITIC [None]
